FAERS Safety Report 15257407 (Version 2)
Quarter: 2019Q3

REPORT INFORMATION
  Report Type: Spontaneous
  Country: US (occurrence: US)
  Receive Date: 20180808
  Receipt Date: 20190731
  Transmission Date: 20191004
  Serious: Yes (Other)
  Sender: FDA-Public Use
  Company Number: US-VIFOR (INTERNATIONAL) INC.-VIT-2018-07744

PATIENT
  Sex: Female

DRUGS (14)
  1. ESCITALOPRAM OXALATE. [Concomitant]
     Active Substance: ESCITALOPRAM OXALATE
  2. SIMVASTATIN. [Concomitant]
     Active Substance: SIMVASTATIN
  3. VITAMIN B12 [Concomitant]
     Active Substance: CYANOCOBALAMIN
  4. IRON FERROUS GLUCONATE [Concomitant]
     Active Substance: FERROUS GLUCONATE
  5. MELATONIN [Concomitant]
     Active Substance: MELATONIN
  6. VELTASSA [Suspect]
     Active Substance: PATIROMER
     Indication: HYPERKALAEMIA
     Route: 048
     Dates: start: 20180607
  7. MULTIVITAMINS [Concomitant]
     Active Substance: VITAMINS
  8. ASPIRIN EC [Concomitant]
     Active Substance: ASPIRIN
  9. CALCIUM 600 [Concomitant]
     Active Substance: CALCIUM
  10. HUMALOG [Concomitant]
     Active Substance: INSULIN LISPRO
  11. METOCLOPRAMIDE HCL [Concomitant]
     Active Substance: METOCLOPRAMIDE HYDROCHLORIDE
  12. LETROZOLE. [Concomitant]
     Active Substance: LETROZOLE
  13. TELMISARTAN. [Concomitant]
     Active Substance: TELMISARTAN
  14. VITAMIN B COMPLEX [Concomitant]
     Active Substance: CYANOCOBALAMIN\DEXPANTHENOL\NIACINAMIDE\PYRIDOXINE HYDROCHLORIDE\RIBOFLAVIN 5^-PHOSPHATE SODIUM\THIAMINE HYDROCHLORIDE\VITAMIN B COMPLEX

REACTIONS (4)
  - Product dose omission [Unknown]
  - Abdominal discomfort [Unknown]
  - Condition aggravated [Unknown]
  - Impaired gastric emptying [Unknown]

NARRATIVE: CASE EVENT DATE: 2018
